FAERS Safety Report 8664157 (Version 2)
Quarter: 2013Q1

REPORT INFORMATION
  Report Type: Spontaneous
  Country: FI (occurrence: FI)
  Receive Date: 20120713
  Receipt Date: 20130110
  Transmission Date: 20140127
  Serious: Yes (Hospitalization, Disabling)
  Sender: FDA-Public Use
  Company Number: FI-ROCHE-1084792

PATIENT
  Age: 60 Year
  Sex: Female

DRUGS (10)
  1. BONVIVA [Suspect]
     Indication: OSTEOPOROSIS
     Route: 048
     Dates: start: 2007, end: 2010
  2. ETIDRONIC ACID [Suspect]
     Indication: OSTEOPOROSIS
     Route: 048
     Dates: start: 1999, end: 2002
  3. FOSAMAX [Suspect]
     Indication: OSTEOPOROSIS
     Route: 048
     Dates: start: 2002, end: 2008
  4. ACLASTA [Suspect]
     Indication: OSTEOPOROSIS
     Route: 042
     Dates: start: 2010, end: 2011
  5. CALCIUM [Suspect]
     Indication: OSTEOPOROSIS
     Route: 048
  6. HUMIRA [Concomitant]
     Indication: RHEUMATOID ARTHRITIS
  7. MEDROL [Concomitant]
     Route: 048
     Dates: start: 1992
  8. CALCIUM [Concomitant]
  9. VITAMIN D [Concomitant]
  10. FORTEO [Concomitant]
     Route: 065
     Dates: start: 201208

REACTIONS (4)
  - Femur fracture [Not Recovered/Not Resolved]
  - Femur fracture [Not Recovered/Not Resolved]
  - Fracture delayed union [Not Recovered/Not Resolved]
  - Hand fracture [Unknown]
